FAERS Safety Report 5480306-8 (Version None)
Quarter: 2007Q3

REPORT INFORMATION
  Report Type: 
  Country: None (occurrence: None)
  Receive Date: 20070913
  Receipt Date: 20070412
  Transmission Date: 20080115
  Serious: Yes (Other)
  Sender: FDA-Public Use
  Company Number: PHEH2007US02061

PATIENT
  Age: 57 Year
  Sex: Male

DRUGS (8)
  1. DIOVAN [Suspect]
     Indication: HYPERTENSION
     Dosage: 40 MG, QD; 80 MG, QD; 80 MG, BID
     Dates: start: 20060201, end: 20061201
  2. DIOVAN [Suspect]
     Indication: HYPERTENSION
     Dosage: 40 MG, QD; 80 MG, QD; 80 MG, BID
     Dates: start: 20061201, end: 20070201
  3. DIOVAN [Suspect]
     Indication: HYPERTENSION
     Dosage: 40 MG, QD; 80 MG, QD; 80 MG, BID
     Dates: start: 20070201
  4. COREG [Concomitant]
  5. PACERONE [Concomitant]
  6. ASPIRIN [Concomitant]
  7. SPIRONOLACTONE [Concomitant]
  8. DIGOXIN [Concomitant]

REACTIONS (3)
  - BLOOD PRESSURE INADEQUATELY CONTROLLED [None]
  - HYPERTENSION [None]
  - RASH [None]
